FAERS Safety Report 8831491 (Version 2)
Quarter: 2013Q1

REPORT INFORMATION
  Report Type: Spontaneous
  Country: US (occurrence: US)
  Receive Date: 20121008
  Receipt Date: 20130213
  Transmission Date: 20140127
  Serious: Yes (Death, Hospitalization)
  Sender: FDA-Public Use
  Company Number: US-GLAXOSMITHKLINE-A0996423A

PATIENT
  Sex: Female

DRUGS (1)
  1. AVANDIA [Suspect]
     Indication: DIABETES MELLITUS
     Route: 048

REACTIONS (7)
  - Thrombotic stroke [Fatal]
  - Arrhythmia [Unknown]
  - Cardiac disorder [Unknown]
  - Cardiac failure [Unknown]
  - Gastric disorder [Unknown]
  - Immune system disorder [Unknown]
  - Somnolence [Unknown]
